FAERS Safety Report 12883906 (Version 11)
Quarter: 2017Q2

REPORT INFORMATION
  Report Type: Spontaneous
  Country: US (occurrence: US)
  Receive Date: 20161026
  Receipt Date: 20170413
  Transmission Date: 20170830
  Serious: Yes (Hospitalization, Other)
  Sender: FDA-Public Use
  Company Number: US-PFIZER INC-2016471982

PATIENT
  Age: 77 Year
  Sex: Male
  Weight: 68.26 kg

DRUGS (27)
  1. ENALAPRIL [Concomitant]
     Active Substance: ENALAPRIL
     Dosage: 20 MG, 2X/DAY
  2. LASIX [Concomitant]
     Active Substance: FUROSEMIDE
     Dosage: 20 MG, 1X/DAY
  3. GLUCOSAMINE [Concomitant]
     Active Substance: GLUCOSAMINE
     Dosage: UNK
  4. PLAVIX [Concomitant]
     Active Substance: CLOPIDOGREL BISULFATE
     Dosage: 75 MG, UNK
  5. POTASSIUM [Concomitant]
     Active Substance: POTASSIUM
     Dosage: 10 MG, UNK
     Dates: start: 20160722
  6. LASIX [Concomitant]
     Active Substance: FUROSEMIDE
     Dosage: 40 MG, 2X/DAY
  7. FLOMAX [Concomitant]
     Active Substance: TAMSULOSIN HYDROCHLORIDE
     Dosage: UNK
  8. CALCIUM [Concomitant]
     Active Substance: CALCIUM
     Dosage: UNK
  9. FLAX SEED [Concomitant]
     Active Substance: FLAX SEED
     Dosage: UNK
  10. AMLODIPINE [Concomitant]
     Active Substance: AMLODIPINE BESYLATE
     Dosage: UNK
  11. GLUCOSAMINE CHONDROITIN [Concomitant]
     Active Substance: CHONDROITIN SULFATE (BOVINE)\GLUCOSAMINE HYDROCHLORIDE
     Dosage: UNK
  12. SUTENT [Suspect]
     Active Substance: SUNITINIB MALATE
     Indication: GASTROINTESTINAL STROMAL TUMOUR
     Dosage: 12.5 MG, DAILY
     Dates: start: 20161012, end: 20161014
  13. CHONDROITIN [Concomitant]
     Active Substance: CHONDROITIN
     Dosage: UNK
  14. CLONAZEPAM. [Concomitant]
     Active Substance: CLONAZEPAM
     Indication: INSOMNIA
     Dosage: 1 MG, 1X/DAY (AT NIGHT)
  15. SUTENT [Suspect]
     Active Substance: SUNITINIB MALATE
     Dosage: 12.5 MG, DAILY
     Dates: start: 20161019, end: 2016
  16. NORVASC [Concomitant]
     Active Substance: AMLODIPINE BESYLATE
     Dosage: 5 MG, UNK
  17. LASIX [Concomitant]
     Active Substance: FUROSEMIDE
     Dosage: 10 MG, DAILY
  18. ASPRIN [Concomitant]
     Active Substance: ASPIRIN
     Dosage: 81 MG, UNK
  19. XANAX [Concomitant]
     Active Substance: ALPRAZOLAM
     Dosage: UNK
  20. POTASSIUM [Concomitant]
     Active Substance: POTASSIUM
     Dosage: 40 MG, UNK
  21. BABY ASPRIN [Concomitant]
     Active Substance: ASPIRIN
     Dosage: UNK
  22. LIPITOR [Concomitant]
     Active Substance: ATORVASTATIN CALCIUM
     Dosage: 20 MG, UNK
  23. CALCITRIOL. [Concomitant]
     Active Substance: CALCITRIOL
     Dosage: 0.25 MG, 1X/DAY
  24. FERROUS SULFATE. [Concomitant]
     Active Substance: FERROUS SULFATE
     Indication: HAEMOGLOBIN DECREASED
     Dosage: UNK
  25. KLONOPIN [Concomitant]
     Active Substance: CLONAZEPAM
     Dosage: UNK
  26. SUTENT [Suspect]
     Active Substance: SUNITINIB MALATE
     Dosage: 37.5 MG, DAILY
     Dates: start: 2016
  27. VASOTEC [Concomitant]
     Active Substance: ENALAPRIL MALEATE
     Dosage: UNK

REACTIONS (15)
  - Abdominal pain upper [Unknown]
  - Joint swelling [Unknown]
  - Neoplasm progression [Unknown]
  - Pollakiuria [Unknown]
  - Oral disorder [Unknown]
  - Abdominal discomfort [Unknown]
  - White blood cell count decreased [Unknown]
  - Haemoglobin decreased [Unknown]
  - Blood pressure increased [Unknown]
  - Toothache [Unknown]
  - Fatigue [Unknown]
  - Tooth socket haemorrhage [Unknown]
  - Depression [Unknown]
  - Feeling abnormal [Unknown]
  - Weight decreased [Unknown]

NARRATIVE: CASE EVENT DATE: 20161014
